FAERS Safety Report 25141918 (Version 1)
Quarter: 2025Q1

REPORT INFORMATION
  Report Type: Report from Study
  Country: US (occurrence: US)
  Receive Date: 20250331
  Receipt Date: 20250331
  Transmission Date: 20250409
  Serious: Yes (Other)
  Sender: TAKEDA
  Company Number: US-TAKEDA-2025TUS029575

PATIENT
  Sex: Female

DRUGS (1)
  1. VEDOLIZUMAB [Suspect]
     Active Substance: VEDOLIZUMAB
     Indication: Crohn^s disease

REACTIONS (15)
  - Cataract [Unknown]
  - Abdominal pain lower [Unknown]
  - Diarrhoea [Unknown]
  - Anxiety [Unknown]
  - Sleep disorder [Unknown]
  - Weight decreased [Unknown]
  - Coccydynia [Unknown]
  - Depression [Unknown]
  - Malaise [Unknown]
  - Decreased appetite [Unknown]
  - Abdominal distension [Unknown]
  - Flatulence [Unknown]
  - Night sweats [Unknown]
  - Nausea [Unknown]
  - Bronchitis [Unknown]
